FAERS Safety Report 6609419-1 (Version None)
Quarter: 2010Q1

REPORT INFORMATION
  Report Type: 
  Country: None (occurrence: None)
  Receive Date: 20100224
  Receipt Date: 20100215
  Transmission Date: 20100710
  Serious: Yes (Hospitalization, Other)
  Sender: FDA-Public Use
  Company Number: 2010JP000990

PATIENT
  Age: 49 Year
  Sex: Male

DRUGS (5)
  1. PROGRAF [Suspect]
     Indication: RENAL TRANSPLANT
  2. BASILIXIMAB (BASILIXIMAB) FORMULATION UNKNOWN [Concomitant]
  3. MYCOPHENOLATE MOFETIL [Concomitant]
  4. PREDNISOLONE [Concomitant]
  5. DENOSINE (GANCICLOVIR) FORMULATION UNKNOWN [Concomitant]

REACTIONS (2)
  - CYTOMEGALOVIRUS VIRAEMIA [None]
  - GUILLAIN-BARRE SYNDROME [None]
